FAERS Safety Report 18048922 (Version 1)
Quarter: 2020Q3

REPORT INFORMATION
  Report Type: Spontaneous
  Country: US (occurrence: US)
  Receive Date: 20200721
  Receipt Date: 20200721
  Transmission Date: 20201103
  Serious: Yes (Hospitalization, Other)
  Sender: FDA-Public Use
  Company Number: US-BION-008869

PATIENT
  Age: 43 Year
  Sex: Male

DRUGS (5)
  1. ZONISAMIDE. [Interacting]
     Active Substance: ZONISAMIDE
     Indication: PARTIAL SEIZURES
     Dosage: 350 MG DAILY AFTER 8 MONTHS
  2. VALPROIC ACID. [Interacting]
     Active Substance: VALPROIC ACID
     Indication: STATUS EPILEPTICUS
     Route: 042
  3. LORAZEPAM. [Concomitant]
     Active Substance: LORAZEPAM
     Indication: STATUS EPILEPTICUS
     Route: 042
  4. LEVETIRACETAM. [Concomitant]
     Active Substance: LEVETIRACETAM
     Indication: PARTIAL SEIZURES
     Dosage: 2000 MG TWICE DAILY WITH A GRADUAL TITRATION SCHEDULE?LEV 4000 MG DAILY
  5. VALPROIC ACID. [Suspect]
     Active Substance: VALPROIC ACID
     Indication: PARTIAL SEIZURES
     Dosage: INCREASED?FROM 1500 MG DAILY TO 2000 MG DAILY

REACTIONS (4)
  - Drug interaction [Unknown]
  - Hyperammonaemic encephalopathy [Recovering/Resolving]
  - Weight increased [Recovering/Resolving]
  - Weight decreased [Recovering/Resolving]
